FAERS Safety Report 9137496 (Version 2)
Quarter: 2014Q1

REPORT INFORMATION
  Report Type: Spontaneous
  Country: US (occurrence: US)
  Receive Date: 20130219
  Receipt Date: 20140213
  Transmission Date: 20141002
  Serious: No
  Sender: FDA-Public Use
  Company Number: US-BRISTOL-MYERS SQUIBB COMPANY-17148396

PATIENT
  Age: 62 Year
  Sex: Female

DRUGS (8)
  1. ABATACEPT SUBQ INJECTION 125MG/ML [Suspect]
     Dosage: 125 MG/1ML?LAST INF:14FEB2013.
     Route: 058
  2. IBUPROFEN [Concomitant]
  3. ALLEGRA [Concomitant]
     Dosage: TABS
  4. CLONAZEPAM [Concomitant]
     Dosage: TABS
  5. TRAZODONE HCL TABS [Concomitant]
  6. FLUOXETINE [Concomitant]
     Dosage: CAPS
  7. TIZANIDINE [Concomitant]
     Dosage: TAB
  8. EYE DROPS [Concomitant]

REACTIONS (3)
  - Nasopharyngitis [Unknown]
  - Dry eye [Unknown]
  - Carpal tunnel syndrome [Unknown]
